FAERS Safety Report 9425181 (Version 1)
Quarter: 2013Q3

REPORT INFORMATION
  Report Type: Spontaneous
  Country: FR (occurrence: FR)
  Receive Date: 20130729
  Receipt Date: 20130729
  Transmission Date: 20140515
  Serious: Yes (Death, Other)
  Sender: FDA-Public Use
  Company Number: FR-PFIZER INC-2013216568

PATIENT
  Age: 68 Year
  Sex: Male

DRUGS (4)
  1. EFFEXOR LP [Suspect]
     Indication: DEPRESSION
     Route: 048
  2. PREZISTA [Suspect]
     Indication: HIV INFECTION
     Route: 048
  3. NORVIR [Suspect]
     Indication: HIV INFECTION
     Route: 048
  4. KIVEXA [Suspect]
     Indication: HIV INFECTION
     Route: 048

REACTIONS (3)
  - Electrocardiogram QT prolonged [Fatal]
  - Cardio-respiratory arrest [Fatal]
  - Pulseless electrical activity [Recovered/Resolved]
